FAERS Safety Report 8400817-2 (Version None)
Quarter: 2012Q2

REPORT INFORMATION
  Report Type: 
  Country: None (occurrence: None)
  Receive Date: 20120531
  Receipt Date: 20120522
  Transmission Date: 20120825
  Serious: Yes (Life-Threatening, Hospitalization, Other)
  Sender: FDA-Public Use
  Company Number: US-RB-040640-12

PATIENT
  Age: 48 Year
  Sex: Female

DRUGS (3)
  1. HEROIN [Suspect]
     Indication: PRODUCT USED FOR UNKNOWN INDICATION
     Dosage: DOSING DETAILS UNKNOWN
     Route: 065
  2. SUBOXONE [Suspect]
     Indication: PRODUCT USED FOR UNKNOWN INDICATION
     Dosage: DOSING DETAILS UNKNOWN
     Route: 065
  3. SUBOXONE [Suspect]
     Dosage: DOSING DETAILS UNKNOWN
     Route: 065

REACTIONS (15)
  - AGGRESSION [None]
  - HEPATIC CIRRHOSIS [None]
  - COMA [None]
  - SPLENIC INJURY [None]
  - SKELETAL INJURY [None]
  - PNEUMONIA [None]
  - VICTIM OF SEXUAL ABUSE [None]
  - ACUTE HEPATIC FAILURE [None]
  - HEPATITIS C [None]
  - OVERDOSE [None]
  - SUICIDAL IDEATION [None]
  - RENAL FAILURE ACUTE [None]
  - ACUTE ENDOCARDITIS [None]
  - ENCEPHALOPATHY [None]
  - CRYING [None]
